FAERS Safety Report 7075065-1 (Version None)
Quarter: 2010Q4

REPORT INFORMATION
  Report Type: 
  Country: None (occurrence: None)
  Receive Date: 20101029
  Receipt Date: 20100329
  Transmission Date: 20110411
  Serious: No
  Sender: FDA-Public Use
  Company Number: US-WYE-H14462710

PATIENT
  Age: 79 Year
  Sex: Female
  Weight: 99.88 kg

DRUGS (4)
  1. ADVIL PM [Suspect]
     Indication: SOMNOLENCE
     Dosage: 2 CAPLETS ONE TIME
     Route: 048
     Dates: start: 20100322, end: 20100322
  2. ADVIL PM [Suspect]
     Indication: PAIN
  3. ADVIL [Concomitant]
  4. VITAMINS [Concomitant]

REACTIONS (5)
  - ACTIVITIES OF DAILY LIVING IMPAIRED [None]
  - DEPRESSED LEVEL OF CONSCIOUSNESS [None]
  - DRUG EFFECT PROLONGED [None]
  - HANGOVER [None]
  - LISTLESS [None]
